FAERS Safety Report 8366466-X (Version None)
Quarter: 2012Q2

REPORT INFORMATION
  Report Type: 
  Country: None (occurrence: None)
  Receive Date: 20120517
  Receipt Date: 20120511
  Transmission Date: 20120825
  Serious: Yes (Life-Threatening, Hospitalization)
  Sender: FDA-Public Use
  Company Number: US-BAYER-2012-047616

PATIENT
  Age: 51 Year
  Sex: Male
  Weight: 102 kg

DRUGS (3)
  1. NAPROXEN SODIUM [Suspect]
     Indication: INFLAMMATION
     Dosage: 3 DF, ONCE
     Route: 048
     Dates: start: 20120511
  2. ANTIHYPERTENSIVES [Concomitant]
  3. ACIPHEX [Concomitant]

REACTIONS (5)
  - COUGH [None]
  - DYSPNOEA [None]
  - PNEUMOTHORAX [None]
  - CHEST DISCOMFORT [None]
  - CHEST PAIN [None]
